FAERS Safety Report 8827974 (Version 1)
Quarter: 2012Q4

REPORT INFORMATION
  Report Type: 
  Country: VE (occurrence: VE)
  Receive Date: 20121008
  Receipt Date: 20121008
  Transmission Date: 20130627
  Serious: Yes (Life-Threatening)
  Sender: FDA-Public Use
  Company Number: VE-SANOFI-AVENTIS-2012SA072832

PATIENT
  Age: 6 Year
  Sex: Female

DRUGS (1)
  1. FASTURTEC [Suspect]
     Indication: DRUG USE FOR UNKNOWN INDICATION
     Route: 065
     Dates: start: 20120925, end: 20120925

REACTIONS (3)
  - Rash vesicular [Unknown]
  - Dark circles under eyes [Unknown]
  - Skin exfoliation [Unknown]
